FAERS Safety Report 17799143 (Version 2)
Quarter: 2020Q2

REPORT INFORMATION
  Report Type: Spontaneous
  Country: JP (occurrence: JP)
  Receive Date: 20200518
  Receipt Date: 20200618
  Transmission Date: 20200714
  Serious: Yes (Other)
  Sender: FDA-Public Use
  Company Number: NVSJ2020JP005063

PATIENT
  Age: 83 Year
  Sex: Female

DRUGS (6)
  1. RIPASUDIL HYDROCHLORIDE DIHYDRATE [Suspect]
     Active Substance: RIPASUDIL HYDROCHLORIDE DIHYDRATE
     Indication: GLAUCOMA
     Dosage: 1 DRP, BID
     Route: 047
     Dates: start: 201610, end: 20190729
  2. BIMATOPROST. [Suspect]
     Active Substance: BIMATOPROST
     Indication: GLAUCOMA
     Dosage: 1 DRP, QD
     Route: 047
     Dates: start: 201711, end: 20190729
  3. XARELTO [Concomitant]
     Active Substance: RIVAROXABAN
     Indication: ARRHYTHMIA
     Dosage: 10 MG
     Route: 048
  4. BRINZOLAMIDE,TIMOLOL [Suspect]
     Active Substance: BRINZOLAMIDE\TIMOLOL
     Indication: GLAUCOMA
     Dosage: 1 DRP, BID
     Route: 047
     Dates: start: 201405, end: 20190729
  5. TRAVOPROST. [Suspect]
     Active Substance: TRAVOPROST
     Indication: GLAUCOMA
     Dosage: 1 DRP, QD
     Route: 047
     Dates: start: 201504, end: 201711
  6. LANSOPRAZOLE. [Concomitant]
     Active Substance: LANSOPRAZOLE
     Indication: PRODUCT USED FOR UNKNOWN INDICATION
     Dosage: 15 MG
     Route: 048

REACTIONS (7)
  - Hyperaemia [Recovering/Resolving]
  - Visual acuity reduced [Unknown]
  - Corneal neovascularisation [Recovering/Resolving]
  - Corneal opacity [Recovering/Resolving]
  - Conjunctivitis [Recovering/Resolving]
  - Corneal infiltrates [Recovering/Resolving]
  - Blepharitis [Recovering/Resolving]

NARRATIVE: CASE EVENT DATE: 20181213
